FAERS Safety Report 21800589 (Version 1)
Quarter: 2022Q4

REPORT INFORMATION
  Report Type: Spontaneous
  Country: HR (occurrence: HR)
  Receive Date: 20221230
  Receipt Date: 20221230
  Transmission Date: 20230113
  Serious: Yes (Other)
  Sender: FDA-Public Use
  Company Number: None

PATIENT
  Age: 17 Year
  Sex: Male
  Weight: 70 kg

DRUGS (2)
  1. RISPERIDONE [Suspect]
     Active Substance: RISPERIDONE
     Indication: Product used for unknown indication
     Dosage: 7 OR 8 TABLETS OF 1 MG EACH (7-8 MG)
     Dates: start: 20221105, end: 20221105
  2. FEVARIN [Suspect]
     Active Substance: FLUVOXAMINE MALEATE
     Indication: Product used for unknown indication
     Dosage: 11 X 100 MG (1100 MG)
     Dates: start: 20221105, end: 20221105

REACTIONS (4)
  - Generalised tonic-clonic seizure [Unknown]
  - Sopor [Unknown]
  - Hypothermia [Unknown]
  - Overdose [Unknown]

NARRATIVE: CASE EVENT DATE: 20221105
